FAERS Safety Report 4787525-4 (Version None)
Quarter: 2005Q4

REPORT INFORMATION
  Report Type: 
  Country: None (occurrence: None)
  Receive Date: 20051003
  Receipt Date: 20050916
  Transmission Date: 20060501
  Serious: Yes (Hospitalization)
  Sender: FDA-Public Use
  Company Number: 2005-US-00199

PATIENT
  Age: 70 Year
  Sex: Male

DRUGS (2)
  1. PROBENECID AND COLCHICINE TABLETS USP, 500MG/0.5MG (COLBENEMID) [Suspect]
     Indication: GOUT
  2. FLUVASTATIN [Concomitant]

REACTIONS (5)
  - ABDOMINAL PAIN UPPER [None]
  - DEHYDRATION [None]
  - NAUSEA [None]
  - RENAL FAILURE ACUTE [None]
  - RHABDOMYOLYSIS [None]
